FAERS Safety Report 8496001-7 (Version None)
Quarter: 2012Q3

REPORT INFORMATION
  Report Type: 
  Country: None (occurrence: None)
  Receive Date: 20120709
  Receipt Date: 20120703
  Transmission Date: 20120928
  Serious: No
  Sender: FDA-Public Use
  Company Number: US-PFIZER INC-2012159690

PATIENT
  Sex: Male

DRUGS (2)
  1. DEPO-TESTOSTERONE [Suspect]
     Dosage: 200 MG/ML, CYCLIC
     Route: 030
     Dates: start: 20120201
  2. DEPO-TESTOSTERONE [Suspect]
     Dosage: UNK
     Route: 030

REACTIONS (1)
  - INJECTION SITE SWELLING [None]
